FAERS Safety Report 10150579 (Version 2)
Quarter: 2014Q2

REPORT INFORMATION
  Report Type: Report from Study
  Country: US (occurrence: US)
  Receive Date: 20140502
  Receipt Date: 20140502
  Transmission Date: 20141212
  Serious: Yes (Hospitalization)
  Sender: FDA-Public Use
  Company Number: US-B.I. PHARMACEUTICALS,INC./RIDGEFIELD-2014-BI-17748II

PATIENT
  Age: 60 Year
  Sex: Female
  Weight: 63 kg

DRUGS (24)
  1. BIBW 2992 [Suspect]
     Indication: SQUAMOUS CELL CARCINOMA
     Dosage: 30 MG
     Route: 048
     Dates: start: 20140325, end: 20140406
  2. DOCETAXEL [Suspect]
     Indication: SQUAMOUS CELL CARCINOMA
     Dosage: DOSE PER APPLICATION: 15MG/M2
     Route: 042
     Dates: start: 20140401, end: 20140401
  3. ALBUTEROL AND IPRATROPIUM NEBULIZER SOLUTION [Concomitant]
     Dosage: FORMULATION:NEBULIZER SOLUTION
     Route: 065
  4. CLONAZEPAM [Concomitant]
     Dosage: 3 MG
     Route: 065
  5. CYCLOBENZAPRINE HCL [Concomitant]
     Route: 065
  6. DOCUSATE SODIUM [Concomitant]
     Dosage: 200 MG
     Route: 065
  7. ENOXAPARIN [Concomitant]
     Dosage: 80 MG
     Route: 058
  8. FAMOTIDINE [Concomitant]
     Dosage: 40 MG
     Route: 065
  9. IPRATROPIUM NEBULIZER [Concomitant]
     Dosage: FORMULATION: NEBULIZER SOLUTION; DOSE PER APPLICATION: 0.2MG/ML
     Route: 065
  10. KADIAN (MORPHINE SUSTAINED RELEASE) [Concomitant]
     Dosage: 300 MG
     Route: 048
  11. LACTOBACILLUS (ACIDOPHILUS AND BULGARICUS) [Concomitant]
     Dosage: 3 ANZ
     Route: 065
  12. LIDOCAINE/MAALOX/DIPHENHYDRAMINE [Concomitant]
     Indication: ORAL PAIN
     Route: 065
  13. LOMOTIL [Concomitant]
     Route: 065
  14. LOPERAMIDE HCL [Concomitant]
     Route: 065
  15. MAALOX PLUS EXTRA STRENGTH [Concomitant]
     Indication: ABDOMINAL DISCOMFORT
     Dosage: 60 ML
     Route: 048
  16. MULTIVITAMIN THERAPEUTIC [Concomitant]
     Dosage: 1 ANZ
     Route: 048
  17. NYSTATIN [Concomitant]
     Dosage: 20 ML
     Route: 048
  18. OXYCODONE [Concomitant]
     Indication: PAIN
     Dosage: 240 MG
     Route: 048
  19. PROMETHAZINE HCL [Concomitant]
     Indication: NAUSEA
     Dosage: 100 MG
     Route: 065
  20. ROBITUSSIN [Concomitant]
     Dosage: 10 ML
     Route: 048
  21. SENNA LIQUID [Concomitant]
     Dosage: 34.4 MG
     Route: 065
  22. WHEAT DEXTRIN [Concomitant]
     Dosage: 12 G
     Route: 065
  23. WHEY PROTEIN [Concomitant]
     Dosage: GTUBE
     Route: 065
  24. XANAX (ALPRAZOLAM) [Concomitant]
     Dosage: 2 MG
     Route: 048

REACTIONS (1)
  - Hypersensitivity [Unknown]
